FAERS Safety Report 21242432 (Version 6)
Quarter: 2022Q4

REPORT INFORMATION
  Report Type: Report from Study
  Country: US (occurrence: US)
  Receive Date: 20220823
  Receipt Date: 20221219
  Transmission Date: 20230113
  Serious: No
  Sender: FDA-Public Use
  Company Number: US-NOVARTISTESTPH-NVSC2022US186000

PATIENT
  Age: 14 Year
  Sex: Male

DRUGS (2)
  1. OMNITROPE [Suspect]
     Active Substance: SOMATROPIN
     Indication: Short stature
     Dosage: 3.4 MG, QD
     Route: 058
     Dates: start: 20220703
  2. OMNITROPE [Suspect]
     Active Substance: SOMATROPIN
     Dosage: 0.67 MG, QD
     Route: 058
     Dates: start: 20220902

REACTIONS (4)
  - Incorrect dose administered by device [Unknown]
  - Product storage error [Unknown]
  - Device issue [Unknown]
  - Product preparation error [Unknown]

NARRATIVE: CASE EVENT DATE: 20220806
